FAERS Safety Report 20999222 (Version 1)
Quarter: 2022Q2

REPORT INFORMATION
  Report Type: Spontaneous
  Country: US (occurrence: None)
  Receive Date: 20220623
  Receipt Date: 20220623
  Transmission Date: 20220721
  Serious: No
  Sender: FDA-Public Use
  Company Number: None

PATIENT

DRUGS (2)
  1. HUMULIN R [Suspect]
     Active Substance: INSULIN HUMAN
  2. INSULIN NOS [Suspect]
     Active Substance: INSULIN NOS

REACTIONS (3)
  - Drug administered in wrong device [None]
  - Device dispensing error [None]
  - Incorrect dose administered [None]
